FAERS Safety Report 8912087 (Version 1)
Quarter: 2012Q4

REPORT INFORMATION
  Report Type: 
  Country: SE (occurrence: SE)
  Receive Date: 20121116
  Receipt Date: 20121116
  Transmission Date: 20130627
  Serious: Yes (Hospitalization, Other)
  Sender: FDA-Public Use
  Company Number: SE-PFIZER INC-2012282993

PATIENT
  Age: 56 Year
  Sex: Female
  Weight: 92.6 kg

DRUGS (18)
  1. GENOTROPIN [Suspect]
     Indication: GROWTH HORMONE DEFICIENCY
     Dosage: 0.3 mg, 1x/day,7 injections/week
     Route: 058
     Dates: start: 20100505
  2. LEVOTHYROXINE [Concomitant]
     Indication: THYROID STIMULATING HORMONE DECREASED
     Dosage: UNK
     Dates: start: 19790115
  3. LEVOTHYROXINE [Concomitant]
     Indication: PRIMARY HYPOTHYROIDISM
  4. ESTROGEN NOS [Concomitant]
     Indication: LUTEINISING HORMONE DEFICIENCY
     Dosage: UNK
     Dates: start: 19800115
  5. ESTROGEN NOS [Concomitant]
     Indication: FOLLICLE-STIMULATING HORMONE DEFICIENCY
  6. ESTROGEN NOS [Concomitant]
     Indication: OVARIAN DISORDER NOS
  7. ESTROGEN NOS [Concomitant]
     Indication: HYPOGONADISM
  8. DHEA [Concomitant]
     Indication: LUTEINISING HORMONE DEFICIENCY
     Dosage: UNK
     Dates: start: 20021022
  9. DHEA [Concomitant]
     Indication: FOLLICLE-STIMULATING HORMONE DEFICIENCY
  10. DHEA [Concomitant]
     Indication: OVARIAN DISORDER NOS
  11. DHEA [Concomitant]
     Indication: HYPOGONADISM
  12. HYDROCORTISONE [Concomitant]
     Indication: ACTH DECREASED
     Dosage: UNK
     Dates: start: 20040726
  13. INDIVINA [Concomitant]
     Indication: LUTEINISING HORMONE DEFICIENCY
     Dosage: UNK
     Dates: start: 20040726
  14. INDIVINA [Concomitant]
     Indication: FOLLICLE-STIMULATING HORMONE DEFICIENCY
  15. INDIVINA [Concomitant]
     Indication: OVARIAN DISORDER NOS
  16. INDIVINA [Concomitant]
     Indication: HYPOGONADISM
  17. LEVAXIN [Concomitant]
     Indication: THYROID DISORDER
     Dosage: UNK
     Dates: start: 20100505
  18. LEVAXIN [Concomitant]
     Indication: PRIMARY HYPOTHYROIDISM

REACTIONS (1)
  - Brain neoplasm [Unknown]
